FAERS Safety Report 14781962 (Version 1)
Quarter: 2018Q2

REPORT INFORMATION
  Report Type: Spontaneous
  Country: US (occurrence: US)
  Receive Date: 20180420
  Receipt Date: 20180420
  Transmission Date: 20180711
  Serious: No
  Sender: FDA-Public Use
  Company Number: US-TEVA-776293ACC

PATIENT
  Sex: Female

DRUGS (1)
  1. WARFARIN [Suspect]
     Active Substance: WARFARIN
     Dosage: 10 MILLIGRAM DAILY;
     Route: 048
     Dates: start: 20170118, end: 20170215

REACTIONS (1)
  - International normalised ratio abnormal [Unknown]
